FAERS Safety Report 18619845 (Version 6)
Quarter: 2021Q4

REPORT INFORMATION
  Report Type: Report from Study
  Country: US (occurrence: US)
  Receive Date: 20201215
  Receipt Date: 20211227
  Transmission Date: 20220303
  Serious: Yes (Hospitalization, Other)
  Sender: FDA-Public Use
  Company Number: US-TAKEDA-US202034101

PATIENT
  Age: 70 Year
  Sex: Female
  Weight: 54 kg

DRUGS (23)
  1. TEDUGLUTIDE [Suspect]
     Active Substance: TEDUGLUTIDE
     Indication: Short-bowel syndrome
     Dosage: 0.13 MILLILITER, QD
     Route: 058
  2. TEDUGLUTIDE [Suspect]
     Active Substance: TEDUGLUTIDE
     Indication: Short-bowel syndrome
     Dosage: 0.13 MILLILITER, QD
     Route: 058
  3. TEDUGLUTIDE [Suspect]
     Active Substance: TEDUGLUTIDE
     Indication: Short-bowel syndrome
     Dosage: 0.13 MILLILITER, QD
     Route: 058
  4. TEDUGLUTIDE [Suspect]
     Active Substance: TEDUGLUTIDE
     Indication: Short-bowel syndrome
     Dosage: 0.13 MILLILITER, QD
     Route: 058
  5. TEDUGLUTIDE [Suspect]
     Active Substance: TEDUGLUTIDE
     Dosage: 0.13 MILLIGRAM, QD
     Route: 058
     Dates: start: 201802, end: 202008
  6. TEDUGLUTIDE [Suspect]
     Active Substance: TEDUGLUTIDE
     Dosage: 0.13 MILLIGRAM, QD
     Route: 058
     Dates: start: 201802, end: 202008
  7. TEDUGLUTIDE [Suspect]
     Active Substance: TEDUGLUTIDE
     Dosage: 0.13 MILLIGRAM, QD
     Route: 058
     Dates: start: 201802, end: 202008
  8. TEDUGLUTIDE [Suspect]
     Active Substance: TEDUGLUTIDE
     Dosage: 0.13 MILLIGRAM, QD
     Route: 058
     Dates: start: 201802, end: 202008
  9. TEDUGLUTIDE [Suspect]
     Active Substance: TEDUGLUTIDE
     Dosage: 0.13 MILLILITER (1.3 MILLIGRAM), QD
     Route: 058
     Dates: start: 20190415
  10. TEDUGLUTIDE [Suspect]
     Active Substance: TEDUGLUTIDE
     Dosage: 0.13 MILLILITER (1.3 MILLIGRAM), QD
     Route: 058
     Dates: start: 20190415
  11. TEDUGLUTIDE [Suspect]
     Active Substance: TEDUGLUTIDE
     Dosage: 0.13 MILLILITER (1.3 MILLIGRAM), QD
     Route: 058
     Dates: start: 20190415
  12. TEDUGLUTIDE [Suspect]
     Active Substance: TEDUGLUTIDE
     Dosage: 0.13 MILLILITER (1.3 MILLIGRAM), QD
     Route: 058
     Dates: start: 20190415
  13. DULOXETINE HYDROCHLORIDE [Concomitant]
     Active Substance: DULOXETINE HYDROCHLORIDE
     Dosage: 60 MILLIGRAM
     Route: 065
  14. ATORVASTATIN CALCIUM [Concomitant]
     Active Substance: ATORVASTATIN CALCIUM
     Dosage: 10 MILLIGRAM
     Route: 065
  15. QUETIAPINE FUMARATE [Concomitant]
     Active Substance: QUETIAPINE FUMARATE
     Dosage: 100 MILLIGRAM
     Route: 065
  16. TRAZODONE HCL [Concomitant]
     Active Substance: TRAZODONE HYDROCHLORIDE
     Dosage: 50 MILLIGRAM
     Route: 065
  17. CLONAZEPAM [Concomitant]
     Active Substance: CLONAZEPAM
     Dosage: 0.5 MILLIGRAM
     Route: 065
  18. LEVOTHYROXINE [Concomitant]
     Active Substance: LEVOTHYROXINE
     Indication: Hypothyroidism
     Dosage: 25 MILLIGRAM, QD
     Route: 065
  19. KLONOPIN [Concomitant]
     Active Substance: CLONAZEPAM
     Dosage: 1 MILLIGRAM, QD
     Route: 065
  20. MAGNESIUM [Concomitant]
     Active Substance: MAGNESIUM
  21. SODIUM CHLORIDE [Concomitant]
     Active Substance: SODIUM CHLORIDE
  22. TPN [Concomitant]
     Active Substance: AMINO ACIDS\DEXTROSE\ELECTROLYTES NOS\SOYBEAN OIL
  23. DISODIUM FUMARATE [Concomitant]
     Active Substance: DISODIUM FUMARATE

REACTIONS (21)
  - Dehydration [Recovered/Resolved]
  - Mental status changes [Unknown]
  - Hyponatraemia [Unknown]
  - Acute kidney injury [Unknown]
  - Gastrointestinal stoma output increased [Unknown]
  - Internal haemorrhage [Unknown]
  - Sepsis [Unknown]
  - Chills [Unknown]
  - Tremor [Unknown]
  - Renal failure [Unknown]
  - Loss of consciousness [Recovering/Resolving]
  - Ulcer haemorrhage [Unknown]
  - Increased appetite [Unknown]
  - Flatulence [Unknown]
  - Head injury [Unknown]
  - Weight increased [Unknown]
  - Hiatus hernia [Unknown]
  - Stoma complication [Unknown]
  - Product dose omission issue [Unknown]
  - Nausea [Unknown]
  - Arteriosclerosis [Unknown]

NARRATIVE: CASE EVENT DATE: 20200610
